FAERS Safety Report 7316124-5 (Version None)
Quarter: 2011Q1

REPORT INFORMATION
  Report Type: 
  Country: None (occurrence: None)
  Receive Date: 20110225
  Receipt Date: 20110216
  Transmission Date: 20110831
  Serious: Yes (Hospitalization)
  Sender: FDA-Public Use
  Company Number: US-JNJFOC-20110103762

PATIENT
  Sex: Male
  Weight: 95.26 kg

DRUGS (3)
  1. STELARA [Suspect]
     Indication: PSORIASIS
     Route: 058
  2. STELARA [Suspect]
     Route: 058
  3. STELARA [Suspect]
     Route: 058

REACTIONS (3)
  - BURSITIS [None]
  - JOINT SWELLING [None]
  - BRONCHITIS [None]
